FAERS Safety Report 16766558 (Version 1)
Quarter: 2019Q3

REPORT INFORMATION
  Report Type: Spontaneous
  Country: US (occurrence: US)
  Receive Date: 20190903
  Receipt Date: 20190903
  Transmission Date: 20191005
  Serious: No
  Sender: FDA-Public Use
  Company Number: US-PFIZER INC-2019371152

PATIENT
  Age: 39 Year
  Sex: Female
  Weight: 51.71 kg

DRUGS (2)
  1. CHANTIX [Suspect]
     Active Substance: VARENICLINE TARTRATE
     Indication: EX-TOBACCO USER
     Dosage: 1 MG, 2X/DAY
     Route: 048
     Dates: end: 201812
  2. CHANTIX [Suspect]
     Active Substance: VARENICLINE TARTRATE
     Dosage: 1 MG, 2X/DAY
     Route: 048
     Dates: start: 2019

REACTIONS (8)
  - Abnormal dreams [Recovered/Resolved]
  - Product dose omission [Unknown]
  - Stress [Unknown]
  - Feeling abnormal [Unknown]
  - Insomnia [Recovered/Resolved]
  - Fatigue [Recovered/Resolved]
  - Mood swings [Recovered/Resolved]
  - Feeling abnormal [Recovered/Resolved]

NARRATIVE: CASE EVENT DATE: 2018
